FAERS Safety Report 18337610 (Version 2)
Quarter: 2020Q4

REPORT INFORMATION
  Report Type: Spontaneous
  Country: US (occurrence: US)
  Receive Date: 20201002
  Receipt Date: 20201009
  Transmission Date: 20210113
  Serious: Yes (Hospitalization, Other)
  Sender: FDA-Public Use
  Company Number: US-ASTRAZENECA-2020SF25360

PATIENT
  Age: 16631 Day
  Sex: Male
  Weight: 100.2 kg

DRUGS (39)
  1. HYDROCHLOROTHIAZIDE. [Concomitant]
     Active Substance: HYDROCHLOROTHIAZIDE
  2. ACETAMINOPHEN-COD [Concomitant]
     Active Substance: ACETAMINOPHEN\CODEINE PHOSPHATE
  3. AZITHROMYCIN ANHYDROUS. [Concomitant]
     Active Substance: AZITHROMYCIN ANHYDROUS
  4. METRONIDAZOLE. [Concomitant]
     Active Substance: METRONIDAZOLE
  5. ATORVASTATIN [Concomitant]
     Active Substance: ATORVASTATIN
  6. LEVEMIR [Concomitant]
     Active Substance: INSULIN DETEMIR
  7. GLIMEPIRIDE. [Concomitant]
     Active Substance: GLIMEPIRIDE
  8. SIMVASTATIN. [Concomitant]
     Active Substance: SIMVASTATIN
  9. FARXIGA [Suspect]
     Active Substance: DAPAGLIFLOZIN PROPANEDIOL
     Indication: WEIGHT DECREASED
     Route: 048
     Dates: start: 20181130, end: 201902
  10. TRESIBA [Concomitant]
     Active Substance: INSULIN DEGLUDEC
  11. LANTUS [Concomitant]
     Active Substance: INSULIN GLARGINE
  12. CLOPIDOGREL [Concomitant]
     Active Substance: CLOPIDOGREL BISULFATE
  13. AMOX-CLAV [Concomitant]
     Active Substance: AMOXICILLIN\CLAVULANATE POTASSIUM
  14. PANTOPRAZOLE [Concomitant]
     Active Substance: PANTOPRAZOLE
  15. METOPROLOL TARTRATE. [Concomitant]
     Active Substance: METOPROLOL TARTRATE
  16. JANUVIA [Concomitant]
     Active Substance: SITAGLIPTIN PHOSPHATE
  17. AMOXICILLIN. [Concomitant]
     Active Substance: AMOXICILLIN
  18. RANITIDINE. [Concomitant]
     Active Substance: RANITIDINE
  19. ZETIA [Concomitant]
     Active Substance: EZETIMIBE
  20. CLINDAMYCIN HCL [Concomitant]
     Active Substance: CLINDAMYCIN HYDROCHLORIDE
  21. PLAVIX [Concomitant]
     Active Substance: CLOPIDOGREL BISULFATE
  22. MAGNESIUM [Concomitant]
     Active Substance: MAGNESIUM
  23. FARXIGA [Suspect]
     Active Substance: DAPAGLIFLOZIN PROPANEDIOL
     Indication: BLOOD PRESSURE ABNORMAL
     Route: 048
     Dates: start: 20181130, end: 201902
  24. CIPROFLOXACIN HCL [Concomitant]
     Active Substance: CIPROFLOXACIN HYDROCHLORIDE
  25. SULFAMETHOXAZOLE [Concomitant]
     Active Substance: SULFAMETHOXAZOLE
  26. GABAPENTIN. [Concomitant]
     Active Substance: GABAPENTIN
  27. TRIAMCINOLONE [Concomitant]
     Active Substance: TRIAMCINOLONE
  28. KLOR-CON [Concomitant]
     Active Substance: POTASSIUM CHLORIDE
  29. CEFDINIR. [Concomitant]
     Active Substance: CEFDINIR
  30. FARXIGA [Suspect]
     Active Substance: DAPAGLIFLOZIN PROPANEDIOL
     Indication: TYPE 2 DIABETES MELLITUS
     Route: 048
     Dates: start: 20181130, end: 201902
  31. LISINOPRIL. [Concomitant]
     Active Substance: LISINOPRIL
  32. TRULICITY [Concomitant]
     Active Substance: DULAGLUTIDE
  33. HEPARIN [Concomitant]
     Active Substance: HEPARIN SODIUM
  34. CEPHALEXIN. [Concomitant]
     Active Substance: CEPHALEXIN
  35. NOVOLOG [Concomitant]
     Active Substance: INSULIN ASPART
  36. METFORMIN HCL [Concomitant]
     Active Substance: METFORMIN HYDROCHLORIDE
  37. ASPIRIN. [Concomitant]
     Active Substance: ASPIRIN
  38. ONDANSETRON [Concomitant]
     Active Substance: ONDANSETRON
  39. NITROGLYCERINE [Concomitant]
     Active Substance: NITROGLYCERIN

REACTIONS (8)
  - Necrotising fasciitis [Unknown]
  - Fournier^s gangrene [Unknown]
  - Perineal abscess [Unknown]
  - Sepsis [Unknown]
  - Nerve injury [Unknown]
  - Pain [Unknown]
  - Scar [Unknown]
  - Anal incontinence [Unknown]

NARRATIVE: CASE EVENT DATE: 20190131
